FAERS Safety Report 4288930-5 (Version None)
Quarter: 2004Q1

REPORT INFORMATION
  Report Type: 
  Country: None (occurrence: None)
  Receive Date: 20040205
  Receipt Date: 20040126
  Transmission Date: 20041129
  Serious: Yes (Hospitalization)
  Sender: FDA-Public Use
  Company Number: 2004PK00207

PATIENT
  Age: 82 Year
  Sex: Female
  Weight: 64.5 kg

DRUGS (4)
  1. ACERBON ^ZENECA^ [Suspect]
     Indication: HYPERTENSION
     Dosage: 5 MG DAILY PO
     Route: 048
     Dates: start: 20020101
  2. INSULIN ACTRAPID ^NOVO NORDISK^ [Suspect]
     Indication: DIABETES MELLITUS NON-INSULIN-DEPENDENT
     Dosage: 56 IU DAILY SQ
     Route: 058
     Dates: start: 19990101
  3. INSULIN ACTRAPID ^NOVO NORDISK^ [Suspect]
     Indication: DIABETES MELLITUS NON-INSULIN-DEPENDENT
     Dosage: IV DAILY SQ
     Route: 058
  4. LANTUS [Suspect]
     Indication: DIABETES MELLITUS NON-INSULIN-DEPENDENT
     Dosage: 20 IU DAILY SQ
     Route: 058
     Dates: start: 19990101

REACTIONS (4)
  - COMA [None]
  - DRUG INTERACTION [None]
  - HYPERHIDROSIS [None]
  - SHOCK HYPOGLYCAEMIC [None]
